FAERS Safety Report 4641127-9 (Version None)
Quarter: 2005Q2

REPORT INFORMATION
  Report Type: 
  Country: None (occurrence: None)
  Receive Date: 20050421
  Receipt Date: 20050110
  Transmission Date: 20051028
  Serious: No
  Sender: FDA-Public Use
  Company Number: TOS-000666

PATIENT

DRUGS (4)
  1. TOSITUMOMAB [Suspect]
     Indication: NON-HODGKIN'S LYMPHOMA
     Route: 042
     Dates: start: 20041118, end: 20041118
  2. IODINE I 131 TOSITUMOMAB [Suspect]
     Indication: NON-HODGKIN'S LYMPHOMA
     Route: 042
     Dates: start: 20041118, end: 20041118
  3. TOSITUMOMAB [Suspect]
     Route: 042
     Dates: start: 20041201, end: 20041201
  4. IODINE I 131 TOSITUMOMAB [Suspect]
     Route: 042
     Dates: start: 20041201, end: 20041201

REACTIONS (4)
  - DIARRHOEA [None]
  - EYE PAIN [None]
  - HEADACHE [None]
  - PHOTOPHOBIA [None]
